FAERS Safety Report 8321163-1 (Version None)
Quarter: 2012Q2

REPORT INFORMATION
  Report Type: 
  Country: None (occurrence: None)
  Receive Date: 20120430
  Receipt Date: 20120419
  Transmission Date: 20120825
  Serious: Yes (Other)
  Sender: FDA-Public Use
  Company Number: CA-JNJFOC-20120409053

PATIENT
  Sex: Female
  Weight: 115 kg

DRUGS (10)
  1. ATIVAN [Concomitant]
     Route: 065
  2. REMICADE [Suspect]
     Indication: PSORIASIS
     Dosage: ONCE EVERY 6 TO 8 WEEKS
     Route: 042
     Dates: start: 20110901
  3. METFORMIN HCL [Concomitant]
     Route: 065
  4. PANTOPRAZOLE SODIUM [Concomitant]
     Route: 065
  5. FUROSEMIDE [Concomitant]
     Route: 065
  6. ATENOLOL [Concomitant]
     Route: 065
  7. SIMVASTATIN [Concomitant]
     Route: 065
  8. ARTHROTEC [Concomitant]
     Route: 065
  9. RAMIPRIL [Concomitant]
     Route: 065
  10. RIVASA [Concomitant]
     Route: 065

REACTIONS (1)
  - BREAST CALCIFICATIONS [None]
